FAERS Safety Report 23937958 (Version 2)
Quarter: 2024Q2

REPORT INFORMATION
  Report Type: Spontaneous
  Country: IN (occurrence: PK)
  Receive Date: 20240604
  Receipt Date: 20240618
  Transmission Date: 20240716
  Serious: Yes (Death)
  Sender: FDA-Public Use
  Company Number: IN-ASTELLAS-2024US015893

PATIENT

DRUGS (1)
  1. CRESEMBA [Suspect]
     Active Substance: ISAVUCONAZONIUM SULFATE
     Indication: Product used for unknown indication
     Route: 042

REACTIONS (2)
  - Illness [Fatal]
  - Hypotension [Unknown]
